FAERS Safety Report 6316735-X (Version None)
Quarter: 2009Q3

REPORT INFORMATION
  Report Type: 
  Country: None (occurrence: None)
  Receive Date: 20090820
  Receipt Date: 20090811
  Transmission Date: 20100115
  Serious: Yes (Hospitalization)
  Sender: FDA-Public Use
  Company Number: ES-ELI_LILLY_AND_COMPANY-ES200908002729

PATIENT
  Age: 82 Year
  Sex: Female

DRUGS (4)
  1. FORTEO [Suspect]
     Indication: OSTEOPOROSIS
     Dosage: 20 UG, UNK
     Route: 058
     Dates: start: 20061001
  2. METFORMIN HCL [Concomitant]
     Indication: DIABETES MELLITUS
  3. ANTIHYPERTENSIVES [Concomitant]
     Indication: HYPERTENSION
  4. CALCIUM [Concomitant]
     Indication: OSTEOPOROSIS

REACTIONS (3)
  - BALANCE DISORDER [None]
  - FALL [None]
  - RIB FRACTURE [None]
